FAERS Safety Report 5099148-0 (Version None)
Quarter: 2006Q3

REPORT INFORMATION
  Report Type: 
  Country: None (occurrence: None)
  Receive Date: 20060731
  Receipt Date: 20050927
  Transmission Date: 20061208
  Serious: Yes (Life-Threatening, Hospitalization)
  Sender: FDA-Public Use
  Company Number: 216977

PATIENT
  Age: 65 Year
  Sex: Male

DRUGS (3)
  1. RITUXAN [Suspect]
     Indication: CHRONIC LYMPHOCYTIC LEUKAEMIA
     Dosage: 720 MG, UNK; INTRAVENOUS
     Route: 042
     Dates: start: 20050705, end: 20050802
  2. FLUDARABINE PHOSPHATE [Concomitant]
  3. TYLENOL (CAPLET) [Concomitant]

REACTIONS (3)
  - PYREXIA [None]
  - RASH GENERALISED [None]
  - SWELLING [None]
